FAERS Safety Report 12802067 (Version 1)
Quarter: 2016Q3

REPORT INFORMATION
  Report Type: Spontaneous
  Country: US (occurrence: US)
  Receive Date: 20160930
  Receipt Date: 20160930
  Transmission Date: 20161109
  Serious: Yes (Other)
  Sender: FDA-Public Use
  Company Number: None

PATIENT
  Age: 46 Year
  Sex: Female
  Weight: 92.25 kg

DRUGS (1)
  1. HYOSCYAMINE SULFATE. [Suspect]
     Active Substance: HYOSCYAMINE SULFATE
     Indication: CROHN^S DISEASE
     Dates: start: 20160520, end: 20160626

REACTIONS (4)
  - Dry mouth [None]
  - Dizziness [None]
  - Product use issue [None]
  - Vision blurred [None]

NARRATIVE: CASE EVENT DATE: 20160531
